FAERS Safety Report 5106652-5 (Version None)
Quarter: 2006Q3

REPORT INFORMATION
  Report Type: 
  Country: None (occurrence: None)
  Receive Date: 20060731
  Receipt Date: 20060708
  Transmission Date: 20061208
  Serious: Yes (Hospitalization)
  Sender: FDA-Public Use
  Company Number: US-JNJFOC-20050702016

PATIENT
  Age: 61 Year
  Sex: Female

DRUGS (4)
  1. RISPERDAL [Suspect]
     Indication: DRUG USE FOR UNKNOWN INDICATION
     Dosage: 6 MG, 1 IN 1 DAY, ORAL
     Route: 048
     Dates: start: 20050101
  2. LITHIUM () LITHIUM [Concomitant]
  3. SEROQUEL [Concomitant]
  4. THYROID MEDICATION (THROID HORMONES) [Concomitant]

REACTIONS (2)
  - DYSPNOEA [None]
  - TACHYCARDIA [None]
